FAERS Safety Report 9732529 (Version 3)
Quarter: 2014Q2

REPORT INFORMATION
  Report Type: Spontaneous
  Country: US (occurrence: US)
  Receive Date: 20131205
  Receipt Date: 20140409
  Transmission Date: 20141212
  Serious: No
  Sender: FDA-Public Use
  Company Number: US-PFIZER INC-2013345040

PATIENT
  Age: 53 Year
  Sex: Female
  Weight: 77.1 kg

DRUGS (19)
  1. XELJANZ [Suspect]
     Indication: RHEUMATOID ARTHRITIS
     Dosage: 5MG (1 TABLET) TWICE DAILY
     Route: 048
  2. VITAMIN D [Concomitant]
     Dosage: 400 IU, UNK
     Route: 048
  3. SIMVASTATIN [Concomitant]
     Dosage: 20 MG, UNK
     Route: 048
  4. FISH OIL [Concomitant]
     Dosage: UNK
     Route: 048
  5. LEVOTHYROXINE [Concomitant]
     Dosage: 88 MCG, UNK
     Route: 048
  6. HYDROCORTISONE [Concomitant]
     Dosage: 2.5 %, UNK
  7. METHADONE [Concomitant]
     Dosage: 10 MG, UNK
     Route: 048
  8. SOMA [Concomitant]
     Dosage: 350 MG, UNK
     Route: 048
  9. DIAZEPAM [Concomitant]
     Dosage: 5 MG, UNK
     Route: 048
  10. VALACICLOVIR [Concomitant]
     Dosage: 500 MG, UNK
     Route: 048
  11. ESTRADIOL [Concomitant]
     Dosage: 2 MG, UNK
     Route: 048
  12. NUCYNTA [Concomitant]
     Dosage: 75 MG, UNK
     Route: 048
  13. FENTANYL [Concomitant]
     Dosage: 12MCG/HOUR
  14. NAPROXEN SODIUM [Concomitant]
     Dosage: 550 MG, UNK
     Route: 048
  15. LEXAPRO [Concomitant]
     Dosage: 20 MG, UNK
     Route: 048
  16. PHENERGAN [Concomitant]
     Dosage: 25 MG, UNK
     Route: 048
  17. PROMETHEGAN [Concomitant]
     Dosage: 12.5 MG, UNK
  18. PREMARIN VAGINAL CREAM [Concomitant]
     Dosage: UNK
  19. IBUPROFEN [Concomitant]
     Dosage: 200 MG, UNK
     Route: 048

REACTIONS (4)
  - Vision blurred [Unknown]
  - Constipation [Unknown]
  - Hyperhidrosis [Unknown]
  - Bronchitis [Unknown]
